FAERS Safety Report 5690675-1 (Version None)
Quarter: 2008Q2

REPORT INFORMATION
  Report Type: 
  Country: None (occurrence: None)
  Receive Date: 20080401
  Receipt Date: 20080320
  Transmission Date: 20081010
  Serious: Yes (Other)
  Sender: FDA-Public Use
  Company Number: GB-GILEAD-2008-0015801

PATIENT
  Age: 36 Year
  Sex: Female

DRUGS (2)
  1. TRUVADA [Suspect]
  2. KALETRA [Concomitant]

REACTIONS (1)
  - CHEST PAIN [None]
